FAERS Safety Report 9618908 (Version 2)
Quarter: 2013Q4

REPORT INFORMATION
  Report Type: Spontaneous
  Country: JP (occurrence: JP)
  Receive Date: 20131014
  Receipt Date: 20131014
  Transmission Date: 20140711
  Serious: Yes (Hospitalization, Other)
  Sender: FDA-Public Use
  Company Number: JP-ROCHE-1271331

PATIENT
  Age: 72 Year
  Sex: Male
  Weight: 66 kg

DRUGS (5)
  1. AVASTIN [Suspect]
     Indication: COLON CANCER METASTATIC
     Route: 041
     Dates: start: 20130822, end: 20130822
  2. 5-FU [Suspect]
     Indication: COLON CANCER METASTATIC
     Route: 041
     Dates: start: 20130822, end: 20130824
  3. 5-FU [Suspect]
     Indication: COLON CANCER METASTATIC
     Route: 040
     Dates: start: 20130822, end: 20130822
  4. ELPLAT [Concomitant]
     Indication: COLON CANCER
     Route: 041
     Dates: start: 20130822, end: 20130822
  5. CALCIUM LEVOFOLINATE [Concomitant]
     Indication: COLON CANCER
     Route: 041
     Dates: start: 20130822, end: 20130822

REACTIONS (2)
  - Gastric ulcer [Recovered/Resolved]
  - Shock [Unknown]
